FAERS Safety Report 17763872 (Version 3)
Quarter: 2020Q2

REPORT INFORMATION
  Report Type: Spontaneous
  Country: US (occurrence: US)
  Receive Date: 20200510
  Receipt Date: 20200629
  Transmission Date: 20200714
  Serious: No
  Sender: FDA-Public Use
  Company Number: US-ASTRAZENECA-2020SE60160

PATIENT
  Age: 22243 Day
  Sex: Female
  Weight: 54.4 kg

DRUGS (1)
  1. PULMICORT FLEXHALER [Suspect]
     Active Substance: BUDESONIDE
     Indication: ASTHMA
     Route: 055
     Dates: start: 20200428

REACTIONS (8)
  - Wheezing [Not Recovered/Not Resolved]
  - Cough [Not Recovered/Not Resolved]
  - Intentional device misuse [Not Recovered/Not Resolved]
  - Oropharyngeal pain [Recovered/Resolved]
  - Device malfunction [Unknown]
  - Drug ineffective [Not Recovered/Not Resolved]
  - Chest discomfort [Unknown]
  - Throat tightness [Unknown]

NARRATIVE: CASE EVENT DATE: 20200428
